FAERS Safety Report 7101139-2 (Version None)
Quarter: 2010Q4

REPORT INFORMATION
  Report Type: 
  Country: None (occurrence: None)
  Receive Date: 20101105
  Receipt Date: 20100913
  Transmission Date: 20110411
  Serious: No
  Sender: FDA-Public Use
  Company Number: 2010-00903

PATIENT
  Age: 59 Year
  Sex: Female
  Weight: 90.7194 kg

DRUGS (6)
  1. ZICAM COLD REMEDY PLUS LIQUI-LOZ [Suspect]
     Dosage: QID X 4 DAYS;
     Dates: start: 20100907, end: 20100911
  2. ZICAM COLD REMEDY RAPIDMELTS [Suspect]
     Dosage: EVERY 3 HOURS; ON GOING
     Dates: start: 20100911
  3. HYDROCHLOROTHIAZIDE [Concomitant]
  4. METOPROLOL SUCCINATE [Concomitant]
  5. SYNTHROID [Concomitant]
  6. CALCIUM CITRATE [Concomitant]

REACTIONS (1)
  - AGEUSIA [None]
